FAERS Safety Report 26102135 (Version 2)
Quarter: 2025Q4

REPORT INFORMATION
  Report Type: Report from Study
  Country: US (occurrence: US)
  Receive Date: 20251128
  Receipt Date: 20251210
  Transmission Date: 20260118
  Serious: Yes (Other)
  Sender: ALEXION PHARMACEUTICALS
  Company Number: US-AstraZeneca-CH-00997237AP

PATIENT
  Sex: Female

DRUGS (2)
  1. CAPIVASERTIB [Suspect]
     Active Substance: CAPIVASERTIB
     Indication: Breast cancer female
     Dates: start: 202505
  2. POTASSIUM [Concomitant]
     Active Substance: POTASSIUM
     Dosage: UNK
     Route: 065

REACTIONS (7)
  - Blood iron abnormal [Unknown]
  - Blood potassium decreased [Unknown]
  - Diarrhoea [Unknown]
  - Fatigue [Unknown]
  - Product blister packaging issue [Unknown]
  - Product physical issue [Unknown]
  - Product dose omission in error [Unknown]
